FAERS Safety Report 5456300-X (Version None)
Quarter: 2007Q3

REPORT INFORMATION
  Report Type: 
  Country: None (occurrence: None)
  Receive Date: 20070918
  Receipt Date: 20070911
  Transmission Date: 20080115
  Serious: Yes (Other)
  Sender: FDA-Public Use
  Company Number: A0679012A

PATIENT
  Age: 41 Year
  Sex: Female

DRUGS (1)
  1. ALLI [Suspect]
     Indication: DRUG USE FOR UNKNOWN INDICATION
     Route: 048
     Dates: start: 20070818

REACTIONS (14)
  - ANAL HAEMORRHAGE [None]
  - ANXIETY [None]
  - BRONCHITIS [None]
  - DEPRESSION [None]
  - EXERCISE LACK OF [None]
  - FAECAL VOLUME INCREASED [None]
  - FAECES HARD [None]
  - FEAR [None]
  - FOOD CRAVING [None]
  - GASTROINTESTINAL DISORDER [None]
  - INCREASED APPETITE [None]
  - MYALGIA [None]
  - PREMENSTRUAL SYNDROME [None]
  - WHEEZING [None]
